FAERS Safety Report 11054523 (Version 1)
Quarter: 2015Q2

REPORT INFORMATION
  Report Type: Spontaneous
  Country: US (occurrence: US)
  Receive Date: 20150422
  Receipt Date: 20150422
  Transmission Date: 20150821
  Serious: No
  Sender: FDA-Public Use
  Company Number: US-MYLANLABS-2014M1014292

PATIENT
  Sex: Male
  Weight: 65.31 kg

DRUGS (5)
  1. TOPIRAMATE TABLETS, USP [Suspect]
     Active Substance: TOPIRAMATE
     Dosage: 25 MG, HS
  2. TOPIRAMATE TABLETS, USP [Suspect]
     Active Substance: TOPIRAMATE
     Indication: SYNCOPE
     Dosage: 25 MG, HS
     Route: 048
     Dates: start: 2013
  3. TOPIRAMATE TABLETS, USP [Suspect]
     Active Substance: TOPIRAMATE
     Indication: OFF LABEL USE
     Dosage: 25 MG, HS
  4. HCTZ [Concomitant]
     Active Substance: HYDROCHLOROTHIAZIDE
     Dosage: UNK
  5. LISINOPRIL. [Concomitant]
     Active Substance: LISINOPRIL
     Dosage: UNK

REACTIONS (2)
  - Therapeutic response unexpected [Not Recovered/Not Resolved]
  - Therapeutic response unexpected [Not Recovered/Not Resolved]

NARRATIVE: CASE EVENT DATE: 2013
